FAERS Safety Report 15725183 (Version 2)
Quarter: 2019Q3

REPORT INFORMATION
  Report Type: Spontaneous
  Country: FR (occurrence: FR)
  Receive Date: 20181215
  Receipt Date: 20190916
  Transmission Date: 20191004
  Serious: Yes (Other)
  Sender: FDA-Public Use
  Company Number: FR-SUN PHARMACEUTICAL INDUSTRIES LTD-2018RR-193673

PATIENT
  Age: 92 Year
  Sex: Male
  Weight: 84 kg

DRUGS (4)
  1. SERESTA [Suspect]
     Active Substance: OXAZEPAM
     Indication: MIXED DEMENTIA
     Dosage: 45 MILLIGRAM, DAILY
     Route: 048
     Dates: start: 20180808, end: 20181107
  2. EUPANTOL [Suspect]
     Active Substance: PANTOPRAZOLE SODIUM
     Indication: PRODUCT USED FOR UNKNOWN INDICATION
     Dosage: 40 MILLIGRAM, DAILY
     Route: 048
     Dates: start: 20180613, end: 20181107
  3. RISPERIDONE. [Suspect]
     Active Substance: RISPERIDONE
     Indication: MIXED DEMENTIA
     Dosage: 1 MILLIGRAM, DAILY
     Route: 048
     Dates: start: 20181003, end: 20181107
  4. MECIR L.P. 0,4 MG, COMPRIME PELLICULE E LIBERATION PROLONGEE [Suspect]
     Active Substance: TAMSULOSIN HYDROCHLORIDE
     Indication: BENIGN PROSTATIC HYPERPLASIA
     Dosage: 0.4 MILLIGRAM, DAILY
     Route: 048
     Dates: start: 20180613, end: 20181107

REACTIONS (1)
  - Fall [Recovered/Resolved]

NARRATIVE: CASE EVENT DATE: 201807
